FAERS Safety Report 17532148 (Version 1)
Quarter: 2020Q1

REPORT INFORMATION
  Report Type: Spontaneous
  Country: CN (occurrence: CN)
  Receive Date: 20200311
  Receipt Date: 20200311
  Transmission Date: 20200409
  Serious: Yes (Hospitalization)
  Sender: FDA-Public Use
  Company Number: CN-BAXTER-2020BAX005150

PATIENT
  Age: 64 Year
  Sex: Female
  Weight: 54 kg

DRUGS (5)
  1. 0.9% SODIUM CHLORIDE INJECTION [Suspect]
     Active Substance: SODIUM CHLORIDE
     Dosage: FIRST CHEMOTHERAPY, TAXOTERE INJECTION 112 MG + SODIUM CHLORIDE INJECTION
     Route: 041
     Dates: start: 20200204, end: 20200204
  2. TAXOTERE [Suspect]
     Active Substance: DOCETAXEL
     Indication: BREAST CANCER STAGE II
     Dosage: FIRST CHEMOTHERAPY, TAXOTERE INJECTION + SODIUM CHLORIDE INJECTION 250 ML
     Route: 041
     Dates: start: 20200204, end: 20200204
  3. GRANULOCYTE STIMULATING FACTOR [Concomitant]
     Active Substance: GRANULOCYTE COLONY-STIMULATING FACTOR NOS
     Indication: PREMEDICATION
     Dosage: AFTER CHEMOTHERAPY
     Route: 058
     Dates: start: 20200205, end: 20200207
  4. ENDOXAN [Suspect]
     Active Substance: CYCLOPHOSPHAMIDE
     Indication: BREAST CANCER STAGE II
     Dosage: FIRST CHEMOTHERAPY, ENDOXAN INJECTION + SODIUM CHLORIDE INJECTION 100 ML
     Route: 041
     Dates: start: 20200204, end: 20200204
  5. 0.9% SODIUM CHLORIDE INJECTION [Suspect]
     Active Substance: SODIUM CHLORIDE
     Indication: MEDICATION DILUTION
     Dosage: FIRST CHEMOTHERAPY, ENDOXAN INJECTION 0.9 G + SODIUM CHLORIDE INJECTION
     Route: 041
     Dates: start: 20200204, end: 20200204

REACTIONS (4)
  - Chills [Unknown]
  - White blood cell count decreased [Recovered/Resolved]
  - Neutrophil count decreased [Recovered/Resolved]
  - Pyrexia [Recovered/Resolved]

NARRATIVE: CASE EVENT DATE: 20200212
